FAERS Safety Report 9630029 (Version 2)
Quarter: 2014Q1

REPORT INFORMATION
  Report Type: Report from Study
  Country: US (occurrence: US)
  Receive Date: 20131017
  Receipt Date: 20140213
  Transmission Date: 20141002
  Serious: Yes (Death, Congenital Anomaly)
  Sender: FDA-Public Use
  Company Number: US-ABBVIE-13P-163-1156240-00

PATIENT
  Sex: Male

DRUGS (2)
  1. KALETRA [Suspect]
     Indication: MATERNAL EXPOSURE TIMING UNSPECIFIED
     Route: 064
  2. COMBIVIR [Suspect]
     Indication: MATERNAL EXPOSURE TIMING UNSPECIFIED
     Route: 064

REACTIONS (7)
  - Abortion induced [Fatal]
  - Meningomyelocele [Unknown]
  - Nervous system disorder [Unknown]
  - Dysmorphism [Unknown]
  - Cerebral ventricle dilatation [Unknown]
  - Congenital renal disorder [Unknown]
  - Foetal exposure during pregnancy [Unknown]
